FAERS Safety Report 7653423-1 (Version None)
Quarter: 2011Q3

REPORT INFORMATION
  Report Type: 
  Country: None (occurrence: None)
  Receive Date: 20110722
  Receipt Date: 20110330
  Transmission Date: 20111222
  Serious: Yes (Hospitalization)
  Sender: FDA-Public Use
  Company Number: UTC-006033

PATIENT
  Age: 4 Year
  Sex: Male
  Weight: 16.4 kg

DRUGS (2)
  1. REMODULIN [Suspect]
     Dosage: 262.08 UG/KG (0.182 UG/KG,1 IN 1 MIN),INTRAVENOUS
     Route: 042
     Dates: start: 20081023
  2. DIURETICS (DIURETICS) [Concomitant]

REACTIONS (3)
  - RHINOVIRUS INFECTION [None]
  - DIARRHOEA [None]
  - RESPIRATORY SYNCYTIAL VIRUS INFECTION [None]
